FAERS Safety Report 25302899 (Version 1)
Quarter: 2025Q2

REPORT INFORMATION
  Report Type: Spontaneous
  Country: IT (occurrence: IT)
  Receive Date: 20250512
  Receipt Date: 20250512
  Transmission Date: 20250717
  Serious: Yes (Life-Threatening, Hospitalization)
  Sender: NOVARTIS
  Company Number: None

PATIENT
  Age: 65 Year
  Sex: Female
  Weight: 67 kg

DRUGS (2)
  1. LUTATHERA [Suspect]
     Active Substance: LUTETIUM OXODOTREOTIDE LU-177
     Indication: Gastroenteropancreatic neuroendocrine tumour disease
     Dosage: 100 MCI, Q2MO (PRIMO CICLO CON LUTATHERA 200 MCI (02.12.2024)SECONDO CICLO DI LUTATHERA ? STATO EFFE
     Route: 042
     Dates: start: 20250203, end: 20250203
  2. LEVOTHYROXINE SODIUM [Concomitant]
     Active Substance: LEVOTHYROXINE SODIUM
     Indication: Hypothyroidism
     Route: 065

REACTIONS (2)
  - Neutropenia [Recovered/Resolved with Sequelae]
  - Haematotoxicity [Unknown]

NARRATIVE: CASE EVENT DATE: 20250414
